FAERS Safety Report 12612249 (Version 1)
Quarter: 2016Q3

REPORT INFORMATION
  Report Type: Spontaneous
  Country: JP (occurrence: JP)
  Receive Date: 20160801
  Receipt Date: 20160801
  Transmission Date: 20161109
  Serious: No
  Sender: FDA-Public Use
  Company Number: PHJP2016JP021715

PATIENT
  Sex: Male

DRUGS (4)
  1. PREDNISOLONE. [Concomitant]
     Active Substance: PREDNISOLONE
     Dosage: UNK
     Route: 065
  2. NILOTINIB [Suspect]
     Active Substance: NILOTINIB
     Dosage: 800 MG, QD
     Route: 048
  3. PREDNISOLONE. [Concomitant]
     Active Substance: PREDNISOLONE
     Indication: PRODUCT USED FOR UNKNOWN INDICATION
     Dosage: UNK
     Route: 065
  4. NILOTINIB [Suspect]
     Active Substance: NILOTINIB
     Indication: CHRONIC MYELOID LEUKAEMIA
     Dosage: UNK
     Route: 048

REACTIONS (5)
  - Pollakiuria [Unknown]
  - Pruritus [Unknown]
  - Headache [Unknown]
  - Blood bilirubin increased [Unknown]
  - Chest pain [Recovering/Resolving]
